FAERS Safety Report 25267701 (Version 2)
Quarter: 2025Q2

REPORT INFORMATION
  Report Type: Spontaneous
  Country: US (occurrence: US)
  Receive Date: 20250505
  Receipt Date: 20250602
  Transmission Date: 20250717
  Serious: Yes (Other)
  Sender: BAYER HEALTHCARE LLC
  Company Number: US-BAYER-2025A055099

PATIENT
  Age: 86 Year
  Sex: Female

DRUGS (1)
  1. MIRALAX [Suspect]
     Active Substance: POLYETHYLENE GLYCOL 3350
     Indication: Gastrointestinal disorder
     Route: 048
     Dates: start: 2020

REACTIONS (3)
  - Nephrolithiasis [Not Recovered/Not Resolved]
  - Haematuria [Not Recovered/Not Resolved]
  - Therapeutic product effect decreased [None]

NARRATIVE: CASE EVENT DATE: 20250401
